FAERS Safety Report 7752976 (Version 5)
Quarter: 2012Q4

REPORT INFORMATION
  Report Type: 
  Country: US (occurrence: US)
  Receive Date: 20110110
  Receipt Date: 20120919
  Transmission Date: 20130627
  Serious: Yes (Hospitalization)
  Sender: FDA-Public Use
  Company Number: US-BIOGENIDEC-2011BI000420

PATIENT
  Age: 33 Year
  Sex: Female
  Weight: 61 kg

DRUGS (7)
  1. AVONEX [Suspect]
     Indication: MULTIPLE SCLEROSIS
     Route: 030
     Dates: start: 20101015, end: 20101210
  2. TOPOMAX [Concomitant]
     Indication: MIGRAINE
     Route: 048
  3. VITAMIN D [Concomitant]
  4. AMBIEN [Concomitant]
     Indication: SLEEP DISORDER
     Route: 048
  5. HYDROCODONE [Concomitant]
     Indication: NEUROPATHY PERIPHERAL
     Route: 048
  6. VITAMIN C [Concomitant]
     Route: 048
  7. BCP, INTERPRETED AS BIRTH CONTROL PILLS (NOS) [Concomitant]

REACTIONS (1)
  - Pulmonary embolism [Recovered/Resolved]
